FAERS Safety Report 21722728 (Version 4)
Quarter: 2023Q1

REPORT INFORMATION
  Report Type: Spontaneous
  Country: CA (occurrence: CA)
  Receive Date: 20221213
  Receipt Date: 20230327
  Transmission Date: 20230418
  Serious: Yes (Other)
  Sender: FDA-Public Use
  Company Number: CA-PFIZER INC-202200566158

PATIENT
  Age: 31 Year
  Sex: Male

DRUGS (5)
  1. ABRILADA [Suspect]
     Active Substance: ADALIMUMAB-AFZB
     Indication: Crohn^s disease
     Dosage: WEEK 0 - 160 MG, WEEK 2 - 80 MG THEN 40 MG EVERY OTHER WEEK
     Route: 058
     Dates: start: 20220311
  2. ABRILADA [Suspect]
     Active Substance: ADALIMUMAB-AFZB
     Dosage: 1 DF, WEEK 0-160 MG, WEEK 2 - 80 MG THEN 40 MG EVERY OTHER WEEK
     Route: 058
     Dates: start: 20220314, end: 202208
  3. ABRILADA [Suspect]
     Active Substance: ADALIMUMAB-AFZB
     Dosage: 160 MG, WEEK 0
     Route: 058
     Dates: start: 20220325
  4. ABRILADA [Suspect]
     Active Substance: ADALIMUMAB-AFZB
     Dosage: 80 MG, WEEK 2 THEN 40MG EVERY OTHER WEEK
     Route: 058
     Dates: start: 20220408
  5. ABRILADA [Suspect]
     Active Substance: ADALIMUMAB-AFZB
     Dosage: 40 MG, WEEKLY
     Route: 058
     Dates: start: 202208

REACTIONS (8)
  - Fistula [Unknown]
  - Drug ineffective [Unknown]
  - Drug specific antibody present [Not Recovered/Not Resolved]
  - Erythema [Unknown]
  - Rash pruritic [Unknown]
  - Rash [Unknown]
  - Anal fissure [Unknown]
  - Off label use [Unknown]

NARRATIVE: CASE EVENT DATE: 20220101
